FAERS Safety Report 23432500 (Version 1)
Quarter: 2024Q1

REPORT INFORMATION
  Report Type: Spontaneous
  Country: CN (occurrence: CN)
  Receive Date: 20240123
  Receipt Date: 20240123
  Transmission Date: 20240410
  Serious: Yes (Other)
  Sender: FDA-Public Use
  Company Number: None

PATIENT
  Age: 56 Year
  Sex: Female
  Weight: 63 kg

DRUGS (4)
  1. CYCLOPHOSPHAMIDE [Suspect]
     Active Substance: CYCLOPHOSPHAMIDE
     Indication: Breast cancer female
     Dosage: 1 G, ONE TIME IN ONE DAY, DILUTED WITH 50ML, 0.9% SODIUM CHLORIDE, D1
     Route: 041
     Dates: start: 20231227, end: 20231227
  2. SODIUM CHLORIDE [Suspect]
     Active Substance: SODIUM CHLORIDE
     Indication: Medication dilution
     Dosage: 50ML, ONE TIME IN ONE DAY, USED TO DILUTE 1G CYCLOPHOSPHAMIDE,INJECTION, D1
     Route: 041
     Dates: start: 20231227, end: 20231227
  3. DEXTROSE [Suspect]
     Active Substance: DEXTROSE\DEXTROSE MONOHYDRATE
     Indication: Medication dilution
     Dosage: 600ML, ONE TIME IN ONE DAY, USED TO DILUTE 300 MG PACLITAXEL LIPOSOME,INJECTION, D1
     Route: 041
     Dates: start: 20231227, end: 20231227
  4. PACLITAXEL [Suspect]
     Active Substance: PACLITAXEL
     Indication: Breast cancer female
     Dosage: 300 MG, ONE TIME IN ONE DAY, DILUTED WITH 600ML, 5% GLUCOSE
     Route: 041
     Dates: start: 20231227, end: 20231227

REACTIONS (1)
  - Leukopenia [Recovered/Resolved]

NARRATIVE: CASE EVENT DATE: 20240103
